FAERS Safety Report 17004233 (Version 1)
Quarter: 2019Q4

REPORT INFORMATION
  Report Type: Spontaneous
  Country: GB (occurrence: BE)
  Receive Date: 20191107
  Receipt Date: 20191107
  Transmission Date: 20200122
  Serious: Yes (Hospitalization)
  Sender: FDA-Public Use
  Company Number: BE-BAYER-2019-196543

PATIENT
  Age: 45 Year
  Sex: Female
  Weight: 43 kg

DRUGS (1)
  1. MIRENA [Suspect]
     Active Substance: LEVONORGESTREL
     Indication: ADENOMYOSIS
     Route: 015

REACTIONS (9)
  - Hot flush [Not Recovered/Not Resolved]
  - Vomiting [Unknown]
  - Vertigo [Unknown]
  - Hypertension [Not Recovered/Not Resolved]
  - Visual impairment [Unknown]
  - Abdominal distension [Unknown]
  - Tachycardia [Not Recovered/Not Resolved]
  - Anxiety [Unknown]
  - Nausea [Unknown]

NARRATIVE: CASE EVENT DATE: 20190927
